FAERS Safety Report 9667664 (Version 2)
Quarter: 2014Q1

REPORT INFORMATION
  Report Type: Spontaneous
  Country: US (occurrence: US)
  Receive Date: 20131104
  Receipt Date: 20140319
  Transmission Date: 20141002
  Serious: Yes (Hospitalization)
  Sender: FDA-Public Use
  Company Number: US-B.I. PHARMACEUTICALS,INC./RIDGEFIELD-2013-BI-34678BP

PATIENT
  Sex: Female
  Weight: 82 kg

DRUGS (5)
  1. PRADAXA [Suspect]
     Indication: ATRIAL FIBRILLATION
     Route: 065
     Dates: start: 20110414
  2. TENORMIN [Concomitant]
     Route: 065
     Dates: start: 1981, end: 2011
  3. METOPROLOL [Concomitant]
     Route: 065
     Dates: start: 2012, end: 2014
  4. LASIX [Concomitant]
     Route: 065
     Dates: start: 1980, end: 2014
  5. POTASSIUM [Concomitant]
     Route: 065
     Dates: start: 1980, end: 2014

REACTIONS (4)
  - Gastrointestinal haemorrhage [Unknown]
  - Haemorrhagic anaemia [Unknown]
  - Local swelling [Unknown]
  - Urinary tract infection [Unknown]
